FAERS Safety Report 7347305-2 (Version None)
Quarter: 2011Q1

REPORT INFORMATION
  Report Type: 
  Country: None (occurrence: None)
  Receive Date: 20110311
  Receipt Date: 20110304
  Transmission Date: 20110831
  Serious: Yes (Death, Hospitalization)
  Sender: FDA-Public Use
  Company Number: BR-ROCHE-680141

PATIENT
  Sex: Female
  Weight: 69.5 kg

DRUGS (9)
  1. DOCETAXEL [Suspect]
     Dosage: FREQUENCY: 21/21, FORM: INFUSION,LAST DOSE PRIOR TO SAE:28 DECEMBER 2009
     Route: 042
     Dates: start: 20090825, end: 20100119
  2. CAPTOPRIL [Concomitant]
     Dates: start: 19990101
  3. DIMORF [Concomitant]
     Dates: start: 20090810
  4. TRASTUZUMAB [Suspect]
     Dosage: FREQUENCY REPORTED AS 21/21, FORM INFUSION. LAST DOSE PRIOR TO SAE: 28 DEC 2009.
     Route: 042
     Dates: start: 20090825, end: 20100119
  5. TRASTUZUMAB [Suspect]
     Dosage: FREQUENCY: 21/21. LAST DOSE PRIOR TO SAE: 10 MARCH 2010.  DOSE FORM: INFUSION
     Route: 042
     Dates: start: 20100128
  6. DIAZEPAM [Concomitant]
     Dates: start: 20090916, end: 20091013
  7. PLACEBO [Suspect]
     Dosage: FREQUENCY RPTD AS 21/21, FORM INFUSION. LAST DOSE PRIOR TO SAE: 28 DEC 2009.DOSE BLINDED
     Route: 042
     Dates: start: 20090824, end: 20100119
  8. PLACEBO [Suspect]
     Dosage: LAST DOSE PRIOR TO SAE: 10 MARCH 2010.
     Route: 042
     Dates: start: 20100128
  9. DOCETAXEL [Suspect]
     Route: 042
     Dates: start: 20100128

REACTIONS (3)
  - SEPSIS [None]
  - GASTROINTESTINAL INFECTION [None]
  - VIRAL INFECTION [None]
